FAERS Safety Report 9208265 (Version 1)
Quarter: 2013Q2

REPORT INFORMATION
  Report Type: Spontaneous
  Country: US (occurrence: US)
  Receive Date: 20130403
  Receipt Date: 20130403
  Transmission Date: 20140414
  Serious: No
  Sender: FDA-Public Use
  Company Number: US-009507513-1304USA001060

PATIENT
  Sex: Male

DRUGS (5)
  1. JANUMET [Suspect]
     Indication: DIABETES MELLITUS
     Dosage: 1 TABLET, BID
     Route: 048
  2. VYTORIN [Concomitant]
  3. VITAMINS (UNSPECIFIED) [Concomitant]
  4. METHOTREXATE [Concomitant]
  5. FOLIC ACID [Concomitant]

REACTIONS (1)
  - Blood glucose abnormal [Recovered/Resolved]
